FAERS Safety Report 10157406 (Version 4)
Quarter: 2014Q2

REPORT INFORMATION
  Report Type: Report from Study
  Country: JP (occurrence: JP)
  Receive Date: 20140507
  Receipt Date: 20140609
  Transmission Date: 20141212
  Serious: Yes (Death, Life-Threatening)
  Sender: FDA-Public Use
  Company Number: JP-SA-2014SA058443

PATIENT
  Age: 69 Year
  Sex: Male
  Weight: 51.9 kg

DRUGS (9)
  1. DOCETAXEL [Suspect]
     Indication: NON-SMALL CELL LUNG CANCER STAGE IV
     Route: 065
     Dates: start: 20140416, end: 20140416
  2. BLINDED THERAPY [Suspect]
     Indication: NON-SMALL CELL LUNG CANCER STAGE IV
     Route: 065
     Dates: start: 20140416, end: 20140416
  3. OXYCONTIN [Concomitant]
     Dates: start: 20140328, end: 20140424
  4. CALONAL [Concomitant]
     Dates: start: 20140403, end: 20140424
  5. MAGMITT [Concomitant]
     Dates: start: 20140303, end: 20140424
  6. LAC B [Concomitant]
     Dosage: POWDER
     Dates: start: 20130711, end: 20140424
  7. FENTANYL CITRATE [Concomitant]
     Indication: CANCER PAIN
     Route: 048
     Dates: start: 20140424, end: 20140424
  8. OXYNORM [Concomitant]
     Dosage: POWDER
     Dates: start: 20140324, end: 20140424
  9. PURSENNID [Concomitant]
     Indication: CONSTIPATION
     Dates: start: 20140303, end: 20140424

REACTIONS (2)
  - Septic shock [Fatal]
  - Ileus paralytic [Not Recovered/Not Resolved]
